FAERS Safety Report 23270216 (Version 1)
Quarter: 2023Q4

REPORT INFORMATION
  Report Type: Report from Study
  Country: US (occurrence: None)
  Receive Date: 20231207
  Receipt Date: 20231207
  Transmission Date: 20240109
  Serious: Yes (Hospitalization)
  Sender: FDA-Public Use
  Company Number: 2023A271896

PATIENT
  Sex: Male
  Weight: 106.6 kg

DRUGS (17)
  1. CALQUENCE [Suspect]
     Active Substance: ACALABRUTINIB
     Indication: Chronic lymphocytic leukaemia
     Route: 048
     Dates: start: 20221202
  2. ALLOPURINOL [Concomitant]
     Active Substance: ALLOPURINOL
  3. ASPIRIN [Concomitant]
     Active Substance: ASPIRIN
  4. COLACE [Concomitant]
     Active Substance: DOCUSATE SODIUM
  5. FARXIGA [Concomitant]
     Active Substance: DAPAGLIFLOZIN PROPANEDIOL
  6. VITAMIN D3 [Concomitant]
     Active Substance: CHOLECALCIFEROL
  7. HYDROCHLOROTHIAZIDE [Concomitant]
     Active Substance: HYDROCHLOROTHIAZIDE
  8. METOPROLOL [Concomitant]
     Active Substance: METOPROLOL
  9. VITAMINS [Concomitant]
     Active Substance: VITAMINS
  10. NIFEDIPINE [Concomitant]
     Active Substance: NIFEDIPINE
  11. PANTOPRAZOLE [Concomitant]
     Active Substance: PANTOPRAZOLE
  12. PREDNISOLONE [Concomitant]
     Active Substance: PREDNISOLONE
  13. QUERCETIN [Concomitant]
     Active Substance: QUERCETIN
  14. ROSUVASTATIN [Concomitant]
     Active Substance: ROSUVASTATIN
  15. SEMGLEE [Concomitant]
  16. SPIRONOLACTONE [Concomitant]
     Active Substance: SPIRONOLACTONE
  17. VALSARTAN [Concomitant]
     Active Substance: VALSARTAN

REACTIONS (1)
  - Lymphadenopathy [Unknown]
